FAERS Safety Report 7561247-9 (Version None)
Quarter: 2011Q2

REPORT INFORMATION
  Report Type: 
  Country: None (occurrence: None)
  Receive Date: 20110621
  Receipt Date: 20100727
  Transmission Date: 20111010
  Serious: No
  Sender: FDA-Public Use
  Company Number: US-ASTRAZENECA-2010SE35061

PATIENT
  Sex: Male

DRUGS (5)
  1. ALBUTEROL SULFATE AUTOHALER [Concomitant]
  2. VICODIN [Concomitant]
  3. PLAVIX [Concomitant]
  4. PROAIR HFA [Concomitant]
  5. PULMICORT FLEXHALER [Suspect]
     Indication: ASTHMA
     Dosage: 2 INHALATIONS DAILY
     Route: 055
     Dates: start: 20100601

REACTIONS (2)
  - MALAISE [None]
  - BRONCHITIS [None]
